FAERS Safety Report 12232463 (Version 2)
Quarter: 2016Q2

REPORT INFORMATION
  Report Type: Spontaneous
  Country: CA (occurrence: CA)
  Receive Date: 20160401
  Receipt Date: 20160510
  Transmission Date: 20160815
  Serious: Yes (Other)
  Sender: FDA-Public Use
  Company Number: CA-ASTRAZENECA-2016SE32689

PATIENT
  Age: 558 Month
  Sex: Female

DRUGS (6)
  1. SITAGLIPTIN [Concomitant]
     Active Substance: SITAGLIPTIN
  2. FORXIGA [Suspect]
     Active Substance: DAPAGLIFLOZIN
     Indication: TYPE 2 DIABETES MELLITUS
     Route: 048
     Dates: start: 20151207
  3. ATORVASTATIN [Concomitant]
     Active Substance: ATORVASTATIN
  4. HUMULIN N [Concomitant]
     Active Substance: INSULIN HUMAN
  5. CANDESARTAN [Concomitant]
     Active Substance: CANDESARTAN
  6. METFORMIN [Concomitant]
     Active Substance: METFORMIN HYDROCHLORIDE

REACTIONS (5)
  - Tongue disorder [Recovered/Resolved]
  - Tongue fungal infection [Unknown]
  - Oral disorder [Recovered/Resolved]
  - Stomatitis [Recovering/Resolving]
  - Inflammation [Unknown]

NARRATIVE: CASE EVENT DATE: 201601
